FAERS Safety Report 13048979 (Version 1)
Quarter: 2016Q4

REPORT INFORMATION
  Report Type: Spontaneous
  Country: FR (occurrence: FR)
  Receive Date: 20161221
  Receipt Date: 20161221
  Transmission Date: 20170207
  Serious: Yes (Hospitalization)
  Sender: FDA-Public Use
  Company Number: FR-ROCHE-1869947

PATIENT
  Age: 70 Year
  Sex: Female

DRUGS (5)
  1. XELODA [Suspect]
     Active Substance: CAPECITABINE
     Indication: PANCREATIC CARCINOMA
     Route: 048
     Dates: start: 20160517, end: 20160530
  2. ENALAPRIL [Concomitant]
     Active Substance: ENALAPRIL
     Route: 065
  3. NIVESTIM [Concomitant]
     Active Substance: FILGRASTIM
     Route: 065
  4. TEMODAL [Suspect]
     Active Substance: TEMOZOLOMIDE
     Indication: PANCREATIC CARCINOMA
     Route: 048
     Dates: start: 20160527, end: 20160531
  5. LERCAPRESS (FRANCE) [Concomitant]
     Route: 065

REACTIONS (4)
  - Mucosal inflammation [Recovered/Resolved]
  - Agranulocytosis [Recovered/Resolved]
  - Thrombocytopenia [Recovering/Resolving]
  - Colitis [Recovered/Resolved]

NARRATIVE: CASE EVENT DATE: 20160612
